FAERS Safety Report 5396214-7 (Version None)
Quarter: 2007Q3

REPORT INFORMATION
  Report Type: 
  Country: None (occurrence: None)
  Receive Date: 20070725
  Receipt Date: 20070716
  Transmission Date: 20080115
  Serious: Yes (Other)
  Sender: FDA-Public Use
  Company Number: PHEH2007US09340

PATIENT
  Sex: Female

DRUGS (1)
  1. ZELNORM [Suspect]
     Indication: ABDOMINAL PAIN

REACTIONS (4)
  - ABDOMINAL PAIN LOWER [None]
  - LAPAROSCOPY [None]
  - PELVIC DISCOMFORT [None]
  - PELVIC PERITONEAL ADHESIONS [None]
